FAERS Safety Report 16280694 (Version 3)
Quarter: 2019Q2

REPORT INFORMATION
  Report Type: Spontaneous
  Country: US (occurrence: US)
  Receive Date: 20190507
  Receipt Date: 20190605
  Transmission Date: 20190711
  Serious: No
  Sender: FDA-Public Use
  Company Number: US-GLAXOSMITHKLINE-US2019068121

PATIENT
  Age: 70 Year
  Sex: Female

DRUGS (1)
  1. TRELEGY ELLIPTA [Suspect]
     Active Substance: FLUTICASONE FUROATE\UMECLIDINIUM BROMIDE\VILANTEROL TRIFENATATE
     Indication: PRODUCT USED FOR UNKNOWN INDICATION
     Dosage: 1 PUFF(S), 1D 100/62.5/25 UG
     Route: 055
     Dates: start: 2018

REACTIONS (4)
  - Choking sensation [Unknown]
  - Product dose omission [Unknown]
  - Product complaint [Unknown]
  - Product residue present [Unknown]

NARRATIVE: CASE EVENT DATE: 20190413
